FAERS Safety Report 9429296 (Version 11)
Quarter: 2015Q2

REPORT INFORMATION
  Report Type: Spontaneous
  Country: CA (occurrence: CA)
  Receive Date: 20130730
  Receipt Date: 20150407
  Transmission Date: 20150821
  Serious: Yes (Hospitalization, Other)
  Sender: FDA-Public Use
  Company Number: CA-GLAXOSMITHKLINE-A1023156A

PATIENT
  Age: 31 Year
  Sex: Female
  Weight: 56 kg

DRUGS (9)
  1. PREDNISONE. [Concomitant]
     Active Substance: PREDNISONE
     Indication: SYSTEMIC LUPUS ERYTHEMATOSUS
     Route: 048
  2. ALTACE [Concomitant]
     Active Substance: RAMIPRIL
  3. BENLYSTA [Suspect]
     Active Substance: BELIMUMAB
     Indication: SYSTEMIC LUPUS ERYTHEMATOSUS
     Dosage: AT WEEK 0, 2, 4 THEN EVERY 4 WEEKS
     Route: 042
     Dates: start: 20120319
  4. AMLODIPINE [Concomitant]
     Active Substance: AMLODIPINE BESYLATE
     Indication: BLOOD PRESSURE
  5. MORPHINE [Suspect]
     Active Substance: MORPHINE
     Indication: PAIN
     Route: 065
  6. HORMONES [Suspect]
     Active Substance: UNSPECIFIED INGREDIENT
     Indication: PRODUCT USED FOR UNKNOWN INDICATION
     Route: 065
  7. CYCLOSPORINE. [Concomitant]
     Active Substance: CYCLOSPORINE
     Indication: SYSTEMIC LUPUS ERYTHEMATOSUS
     Route: 048
  8. SOLU-MEDROL [Concomitant]
     Active Substance: METHYLPREDNISOLONE SODIUM SUCCINATE
     Route: 048
  9. STEROIDS [Suspect]
     Active Substance: UNSPECIFIED INGREDIENT
     Indication: PRODUCT USED FOR UNKNOWN INDICATION
     Route: 065

REACTIONS (20)
  - Malaise [Unknown]
  - Asthenia [Not Recovered/Not Resolved]
  - Pruritus [Recovered/Resolved]
  - Heat stroke [Unknown]
  - Ascites [Recovered/Resolved]
  - Ovarian cyst [Unknown]
  - Hypertension [Unknown]
  - Adverse event [Unknown]
  - Abdominal distension [Recovered/Resolved]
  - Genital disorder female [Recovered/Resolved]
  - Influenza [Recovered/Resolved]
  - Lower respiratory tract infection [Unknown]
  - Vomiting [Unknown]
  - Decreased appetite [Not Recovered/Not Resolved]
  - Haemorrhagic cyst [Unknown]
  - Decreased appetite [Unknown]
  - Abdominal pain [Recovered/Resolved]
  - Anaemia [Not Recovered/Not Resolved]
  - Pyrexia [Unknown]
  - Nasopharyngitis [Not Recovered/Not Resolved]

NARRATIVE: CASE EVENT DATE: 20130509
